FAERS Safety Report 9862581 (Version 1)
Quarter: 2014Q1

REPORT INFORMATION
  Report Type: Spontaneous
  Country: US (occurrence: US)
  Receive Date: 20140203
  Receipt Date: 20140203
  Transmission Date: 20141002
  Serious: Yes (Disabling, Other)
  Sender: FDA-Public Use
  Company Number: US-GE HEALTHCARE MEDICAL DIAGNOSTICS-OSCN-PR-0810S-0568

PATIENT
  Age: 47 Year
  Sex: Male

DRUGS (42)
  1. OMNISCAN [Suspect]
     Indication: PRODUCT USED FOR UNKNOWN INDICATION
     Route: 042
  2. GADOLINIUM (UNSPECIFIED) [Suspect]
     Indication: PRODUCT USED FOR UNKNOWN INDICATION
     Route: 042
     Dates: start: 20050316, end: 20050316
  3. GADOLINIUM (UNSPECIFIED) [Suspect]
     Indication: PRODUCT USED FOR UNKNOWN INDICATION
     Route: 042
     Dates: start: 20050923, end: 20050923
  4. MAGNEVIST [Suspect]
     Indication: HYPOTHALAMO-PITUITARY DISORDER
     Route: 042
     Dates: start: 20050316, end: 20050316
  5. MAGNEVIST [Suspect]
     Indication: RENAL TRANSPLANT
     Dates: start: 20050923, end: 20050923
  6. OPTIMARK [Suspect]
     Indication: PRODUCT USED FOR UNKNOWN INDICATION
  7. OPTIMARK [Suspect]
  8. MULTIHANCE [Suspect]
     Indication: PRODUCT USED FOR UNKNOWN INDICATION
  9. MULTIHANCE [Suspect]
  10. PROHANCE [Suspect]
     Indication: PRODUCT USED FOR UNKNOWN INDICATION
  11. PROHANCE [Suspect]
  12. VALCYTE [Concomitant]
  13. RENAGEL [Concomitant]
  14. GABAPENTIN [Concomitant]
  15. LASIX [Concomitant]
  16. VICODIN [Concomitant]
  17. PRAVASTATIN [Concomitant]
  18. GANCICLOVIR [Concomitant]
  19. GLIPIZIDE [Concomitant]
  20. K-PHOS [Concomitant]
  21. ROCEPHIN [Concomitant]
  22. REGLAN [Concomitant]
  23. PROGRAF [Concomitant]
  24. MAGNESIUM [Concomitant]
  25. LEXAPRO [Concomitant]
  26. CELLCEPT [Concomitant]
  27. PROTONIX [Concomitant]
  28. HYDROCODONE [Concomitant]
  29. ELAVIL [Concomitant]
  30. LASIX [Concomitant]
  31. SEPTRA [Concomitant]
  32. AZITHROMYCIN [Concomitant]
  33. ARANESP [Concomitant]
  34. FERRLECIT [Concomitant]
  35. ZEMPLAR [Concomitant]
  36. TRACLEER [Concomitant]
  37. LANTUS [Concomitant]
  38. NOVOLOG [Concomitant]
  39. AVALIDE [Concomitant]
  40. VERELAN [Concomitant]
  41. CHLORTHALIDONE [Concomitant]
  42. COREG [Concomitant]

REACTIONS (1)
  - Nephrogenic systemic fibrosis [Not Recovered/Not Resolved]
